FAERS Safety Report 9432264 (Version 1)
Quarter: 2013Q3

REPORT INFORMATION
  Report Type: Spontaneous
  Country: US (occurrence: None)
  Receive Date: 20130730
  Receipt Date: 20130730
  Transmission Date: 20140515
  Serious: Yes (Death)
  Sender: FDA-Public Use
  Company Number: None

PATIENT
  Age: 70 Year
  Sex: Male
  Weight: 72.58 kg

DRUGS (1)
  1. CHLORPROMAZINE HCL [Suspect]
     Indication: HICCUPS
     Dosage: 25MG  4 TIMES A DAY
     Dates: start: 20130411, end: 20130412

REACTIONS (1)
  - Death [None]
